FAERS Safety Report 7371416-9 (Version None)
Quarter: 2011Q1

REPORT INFORMATION
  Report Type: 
  Country: None (occurrence: None)
  Receive Date: 20110322
  Receipt Date: 20110322
  Transmission Date: 20110831
  Serious: Yes (Hospitalization)
  Sender: FDA-Public Use
  Company Number: None

PATIENT
  Sex: Male
  Weight: 90.7194 kg

DRUGS (1)
  1. MORPHINE SULFATE [Suspect]
     Indication: BACK PAIN
     Dosage: MS CONTIN BID PO
     Route: 048
     Dates: start: 20020101

REACTIONS (3)
  - RASH PRURITIC [None]
  - ASTHENIA [None]
  - HYPOTENSION [None]
